FAERS Safety Report 11824432 (Version 1)
Quarter: 2015Q4

REPORT INFORMATION
  Report Type: Report from Study
  Country: TW (occurrence: TW)
  Receive Date: 20151210
  Receipt Date: 20151210
  Transmission Date: 20160305
  Serious: No
  Sender: FDA-Public Use
  Company Number: PHHY2015TW117660

PATIENT
  Age: 55 Year
  Sex: Female

DRUGS (4)
  1. SENNAPUR [Concomitant]
     Indication: HAEMORRHOIDS
     Dosage: 25 MG, UNK
     Route: 048
     Dates: start: 20140807
  2. CYPROHEPTADINE. [Concomitant]
     Active Substance: CYPROHEPTADINE
     Indication: GASTRIC ULCER
     Dosage: 4 MG, UNK
     Route: 048
     Dates: start: 20140820, end: 20140909
  3. TASIGNA [Suspect]
     Active Substance: NILOTINIB
     Indication: CHRONIC MYELOID LEUKAEMIA
     Dosage: 600 MG, UNK
     Route: 048
     Dates: start: 20140807
  4. ESOMEPRAZOLE [Concomitant]
     Active Substance: ESOMEPRAZOLE
     Indication: GASTRIC ULCER
     Dosage: 40 MG, UNK
     Route: 048
     Dates: start: 20140820

REACTIONS (1)
  - Headache [Not Recovered/Not Resolved]

NARRATIVE: CASE EVENT DATE: 20150414
